FAERS Safety Report 9159330 (Version 1)
Quarter: 2013Q1

REPORT INFORMATION
  Report Type: Spontaneous
  Country: US (occurrence: US)
  Receive Date: 20130313
  Receipt Date: 20130313
  Transmission Date: 20140127
  Serious: No
  Sender: FDA-Public Use
  Company Number: US-MYLANLABS-2012S1021929

PATIENT
  Age: 30 Year
  Sex: Female
  Weight: 61.24 kg

DRUGS (2)
  1. DIGITEK [Suspect]
     Dates: start: 1998, end: 2008
  2. ENALAPRIL [Concomitant]

REACTIONS (1)
  - White blood cell count increased [Not Recovered/Not Resolved]
